FAERS Safety Report 5227693-3 (Version None)
Quarter: 2007Q1

REPORT INFORMATION
  Report Type: 
  Country: None (occurrence: None)
  Receive Date: 20070202
  Receipt Date: 20070202
  Transmission Date: 20070707
  Serious: Yes (Other)
  Sender: FDA-Public Use
  Company Number: US-JNJFOC-20070200389

PATIENT
  Sex: Female
  Weight: 116.12 kg

DRUGS (34)
  1. IBUPROFEN [Suspect]
     Indication: DRUG USE FOR UNKNOWN INDICATION
     Dosage: ^FROM THE TIME SHE WAS A TEENAGER^
  2. NAPROSYN [Suspect]
     Indication: DRUG USE FOR UNKNOWN INDICATION
  3. CELEBREX [Suspect]
     Indication: INFLAMMATION
  4. SINGULAIR [Concomitant]
  5. LISINOPRIL [Concomitant]
  6. LIPITOR [Concomitant]
  7. CLARITIN [Concomitant]
  8. FLONASE [Concomitant]
  9. LORTAB [Concomitant]
  10. VALIUM [Concomitant]
  11. ZOLOFT [Concomitant]
  12. AMITRIPTYLINE HCL [Concomitant]
  13. NEURONTIN [Concomitant]
  14. BACLOFEN [Concomitant]
  15. VITAMIN B-12 [Concomitant]
  16. ROBAXIN [Concomitant]
  17. SERAVENT [Concomitant]
  18. FLOVENT [Concomitant]
  19. OXYGEN [Concomitant]
  20. ALBUTEROL [Concomitant]
  21. NEXIUM [Concomitant]
  22. ZELNORM [Concomitant]
  23. FIBROLAX [Concomitant]
  24. DOCUSATE SODIUM [Concomitant]
  25. REGLAN [Concomitant]
  26. DYAZIDE [Concomitant]
  27. ASPIRIN [Concomitant]
  28. VITAMIN E [Concomitant]
  29. MULTIVITAMIN [Concomitant]
  30. ASCORBIC ACID [Concomitant]
  31. UNKNOWN GENTLE LAXATIVE [Concomitant]
  32. MOBIC [Concomitant]
  33. MIRAPEX [Concomitant]
  34. LEVOTHYROXINE SODIUM [Concomitant]

REACTIONS (5)
  - DYSPEPSIA [None]
  - EROSIVE OESOPHAGITIS [None]
  - INTRACRANIAL ANEURYSM [None]
  - NAUSEA [None]
  - SWELLING [None]
